FAERS Safety Report 8086733-7 (Version None)
Quarter: 2012Q1

REPORT INFORMATION
  Report Type: 
  Country: None (occurrence: None)
  Receive Date: 20120128
  Receipt Date: 20110609
  Transmission Date: 20120608
  Serious: No
  Sender: FDA-Public Use
  Company Number: US-ABBOTT-11P-163-0731939-00

PATIENT
  Sex: Female
  Weight: 44.492 kg

DRUGS (3)
  1. HUMIRA [Suspect]
     Indication: RHEUMATOID ARTHRITIS
     Dosage: ONCE
     Dates: start: 20110501, end: 20110501
  2. ESTROGENIC SUBSTANCE [Concomitant]
     Indication: HORMONE REPLACEMENT THERAPY
  3. CELEBREX [Concomitant]
     Indication: RHEUMATOID ARTHRITIS

REACTIONS (4)
  - INJECTION SITE SWELLING [None]
  - RASH [None]
  - ERYTHEMA [None]
  - SWELLING FACE [None]
